FAERS Safety Report 21307474 (Version 2)
Quarter: 2022Q3

REPORT INFORMATION
  Report Type: Spontaneous
  Country: US (occurrence: US)
  Receive Date: 20220908
  Receipt Date: 20220921
  Transmission Date: 20221026
  Serious: Yes (Hospitalization, Other)
  Sender: FDA-Public Use
  Company Number: US-PFIZER INC-202201135676

PATIENT
  Age: 81 Year
  Sex: Female
  Weight: 52.16 kg

DRUGS (3)
  1. MEDROXYPROGESTERONE ACETATE [Suspect]
     Active Substance: MEDROXYPROGESTERONE ACETATE
     Indication: Withdrawal syndrome
     Dosage: 2.5 MG ONE TABLET DAILY BY MOUTH
     Route: 048
  2. ESTRADIOL [Suspect]
     Active Substance: ESTRADIOL
     Indication: Withdrawal syndrome
     Dosage: 0.5 MG, 1X/DAY
     Route: 048
  3. ESTRADIOL [Suspect]
     Active Substance: ESTRADIOL
     Dosage: TWICE A WEEK FOR 2 WEEKS; 4 SUPPOSITORIES

REACTIONS (3)
  - Discharge [Not Recovered/Not Resolved]
  - Thrombosis [Not Recovered/Not Resolved]
  - Memory impairment [Unknown]

NARRATIVE: CASE EVENT DATE: 20220830
